FAERS Safety Report 16539100 (Version 1)
Quarter: 2019Q3

REPORT INFORMATION
  Report Type: Spontaneous
  Country: US (occurrence: US)
  Receive Date: 20190708
  Receipt Date: 20190708
  Transmission Date: 20191004
  Serious: Yes (Life-Threatening, Other)
  Sender: FDA-Public Use
  Company Number: US-009507513-1907USA000500

PATIENT
  Age: 52 Year
  Sex: Female
  Weight: 55.33 kg

DRUGS (12)
  1. SINEMET [Suspect]
     Active Substance: CARBIDOPA\LEVODOPA
     Dosage: 2 TABLETS DAILY, STRENGTH: 25/100 (UNITS NOT PROVIDED)
     Route: 048
  2. SINEMET [Suspect]
     Active Substance: CARBIDOPA\LEVODOPA
     Dosage: 500 MG PER DAY
     Route: 048
  3. ROTIGOTINE [Concomitant]
     Active Substance: ROTIGOTINE
     Dosage: 4 MILLIGRAM
     Route: 062
  4. SINEMET [Suspect]
     Active Substance: CARBIDOPA\LEVODOPA
     Indication: PARKINSON^S DISEASE
     Dosage: 3 TABLETS DAILY, STRENGTH: 25/100 (UNITS NOT PROVIDED)
     Route: 048
  5. SINEMET [Suspect]
     Active Substance: CARBIDOPA\LEVODOPA
     Dosage: 4 TABLETS DAILY, STRENGTH: 25/100 (UNITS NOT PROVIDED)
     Route: 048
  6. SINEMET [Suspect]
     Active Substance: CARBIDOPA\LEVODOPA
     Dosage: 800 MG PER DAY
     Route: 048
  7. SINEMET [Suspect]
     Active Substance: CARBIDOPA\LEVODOPA
     Dosage: 7?10 TABLETS DAILY
     Route: 048
  8. ESCITALOPRAM [Concomitant]
     Active Substance: ESCITALOPRAM OXALATE
     Indication: ANXIETY
     Dosage: UNK
  9. CLONAZEPAM. [Concomitant]
     Active Substance: CLONAZEPAM
     Dosage: 1 MG AT BEDTIME
  10. ROPINIROLE. [Concomitant]
     Active Substance: ROPINIROLE
     Dosage: 8 MG PER DAY
  11. ROPINIROLE. [Concomitant]
     Active Substance: ROPINIROLE
     Dosage: 16 MG PER DAY
  12. ROTIGOTINE [Concomitant]
     Active Substance: ROTIGOTINE
     Dosage: 8 MILLIGRAM
     Route: 062

REACTIONS (4)
  - Intentional overdose [Unknown]
  - Therapeutic response shortened [Unknown]
  - Weight increased [Unknown]
  - Dopamine dysregulation syndrome [Unknown]
